FAERS Safety Report 8220934-X (Version None)
Quarter: 2012Q1

REPORT INFORMATION
  Report Type: 
  Country: None (occurrence: None)
  Receive Date: 20120320
  Receipt Date: 20120309
  Transmission Date: 20120608
  Serious: Yes (Death, Hospitalization)
  Sender: FDA-Public Use
  Company Number: DE-BRISTOL-MYERS SQUIBB COMPANY-15803117

PATIENT
  Age: 77 Year
  Sex: Male
  Weight: 85 kg

DRUGS (23)
  1. CITALOPRAM HYDROBROMIDE [Concomitant]
     Dates: start: 20110222, end: 20110315
  2. SODIUM CHLORIDE [Concomitant]
     Dates: start: 20110314
  3. FOLIC ACID [Concomitant]
     Dates: start: 20110107, end: 20110118
  4. CALCIUM CARBONATE + CALCIUM GLUBIONATE [Concomitant]
     Dates: start: 20110304
  5. ALIMTA [Suspect]
     Indication: NON-SMALL CELL LUNG CANCER STAGE IV
     Dosage: LAST RECEIVED ON 08MAR2011
     Route: 065
     Dates: start: 20110114
  6. VITAMIN B-12 [Concomitant]
     Dates: start: 20110107
  7. TORSEMIDE [Concomitant]
     Dates: start: 20110226, end: 20110313
  8. ALDACTONE [Concomitant]
     Dates: start: 20110226
  9. AMLODIPINE [Concomitant]
     Dates: end: 20110307
  10. ARIXTRA [Concomitant]
     Dates: start: 20110305, end: 20110309
  11. NECITUMUMAB [Suspect]
     Indication: NON-SMALL CELL LUNG CANCER STAGE IV
     Dosage: LAST RECEIVED ON 20JAN2011
     Route: 065
     Dates: start: 20110114
  12. FRAXIPARINE [Concomitant]
     Dates: start: 20110302
  13. CONCOR PLUS [Concomitant]
     Dates: end: 20110315
  14. CISPLATIN [Suspect]
     Indication: NON-SMALL CELL LUNG CANCER STAGE IV
     Dosage: LAST RECEIVED ON 08MAR2011
     Route: 065
     Dates: start: 20110114
  15. XIMOVAN [Concomitant]
  16. CONCENTRATED RED BLOOD CELLS [Concomitant]
     Dates: start: 20110309, end: 20110309
  17. CALCIUM GLUCONATE [Concomitant]
     Dates: start: 20110304
  18. SIMVASTATIN [Concomitant]
     Dates: end: 20110313
  19. NOVALGIN [Concomitant]
     Dates: start: 20110107, end: 20110309
  20. ZOMETA [Concomitant]
     Dates: start: 20110107
  21. PANTOPRAZOLE [Concomitant]
     Dates: start: 20110219, end: 20110315
  22. CALCIUM CARBONATE [Concomitant]
  23. POTASSIUM CHLORIDE [Concomitant]
     Dates: start: 20110314

REACTIONS (3)
  - MULTI-ORGAN FAILURE [None]
  - NEUTROPENIA [None]
  - SEPSIS [None]
